FAERS Safety Report 17033986 (Version 2)
Quarter: 2019Q4

REPORT INFORMATION
  Report Type: Spontaneous
  Country: AT (occurrence: AT)
  Receive Date: 20191114
  Receipt Date: 20191127
  Transmission Date: 20200122
  Serious: Yes (Other)
  Sender: FDA-Public Use
  Company Number: AT-ARRAY-2019-06716

PATIENT

DRUGS (2)
  1. MEKTOVI [Suspect]
     Active Substance: BINIMETINIB
     Indication: MALIGNANT MELANOMA
     Dosage: 90 MG, QD (1/DAY)
     Route: 048
     Dates: start: 20190607, end: 201910
  2. BRAFTOVI [Suspect]
     Active Substance: ENCORAFENIB
     Indication: MALIGNANT MELANOMA
     Dosage: 450 MG, QD (1/DAY)
     Route: 048
     Dates: start: 20190607, end: 201910

REACTIONS (3)
  - Vision blurred [Recovered/Resolved]
  - Retinal oedema [Recovered/Resolved]
  - Detachment of retinal pigment epithelium [Recovered/Resolved]

NARRATIVE: CASE EVENT DATE: 20190716
